FAERS Safety Report 11935648 (Version 2)
Quarter: 2016Q1

REPORT INFORMATION
  Report Type: Spontaneous
  Country: US (occurrence: US)
  Receive Date: 20160121
  Receipt Date: 20160211
  Transmission Date: 20160526
  Serious: Yes (Hospitalization)
  Sender: FDA-Public Use
  Company Number: US-JNJFOC-20160106992

PATIENT
  Age: 59 Year
  Sex: Male
  Weight: 85.73 kg

DRUGS (13)
  1. DURAGESIC [Suspect]
     Active Substance: FENTANYL
     Indication: BACK DISORDER
     Route: 062
     Dates: start: 20151214
  2. QUETIAPINE [Concomitant]
     Active Substance: QUETIAPINE
     Indication: SLEEP DISORDER
     Route: 048
     Dates: start: 2015
  3. DURAGESIC [Suspect]
     Active Substance: FENTANYL
     Indication: BACK DISORDER
     Route: 062
     Dates: start: 2015
  4. DURAGESIC [Suspect]
     Active Substance: FENTANYL
     Indication: BACK PAIN
     Route: 062
     Dates: start: 2015
  5. DURAGESIC [Suspect]
     Active Substance: FENTANYL
     Indication: BACK PAIN
     Route: 062
     Dates: start: 201511, end: 201512
  6. DURAGESIC [Suspect]
     Active Substance: FENTANYL
     Indication: BACK PAIN
     Route: 062
     Dates: start: 2015, end: 2015
  7. QUETIAPINE [Concomitant]
     Active Substance: QUETIAPINE
     Indication: DEPRESSION
     Route: 048
     Dates: start: 2015
  8. DURAGESIC [Suspect]
     Active Substance: FENTANYL
     Indication: BACK PAIN
     Route: 062
     Dates: start: 20151214
  9. ALBUTEROL SULFATE. [Concomitant]
     Active Substance: ALBUTEROL SULFATE
     Indication: CHRONIC OBSTRUCTIVE PULMONARY DISEASE
     Dosage: 2.5MG/3ML/ 4 TIMES DAILY/INHALATION
     Route: 065
     Dates: start: 2012
  10. DURAGESIC [Suspect]
     Active Substance: FENTANYL
     Indication: BACK DISORDER
     Route: 062
     Dates: start: 201511, end: 201512
  11. DURAGESIC [Suspect]
     Active Substance: FENTANYL
     Indication: BACK DISORDER
     Route: 062
     Dates: start: 2015, end: 2015
  12. OXYCODONE [Concomitant]
     Active Substance: OXYCODONE
     Indication: PAIN
     Route: 048
     Dates: start: 2014
  13. CARVEDILOL. [Concomitant]
     Active Substance: CARVEDILOL
     Indication: HYPERTENSION
     Route: 048
     Dates: start: 2015

REACTIONS (7)
  - Staphylococcal infection [Unknown]
  - Drug dose omission [Unknown]
  - Dizziness [Recovered/Resolved]
  - Product adhesion issue [Unknown]
  - Drug ineffective [Unknown]
  - Drug effect decreased [Unknown]
  - Drug effect increased [Unknown]

NARRATIVE: CASE EVENT DATE: 2015
